FAERS Safety Report 23915623 (Version 2)
Quarter: 2024Q2

REPORT INFORMATION
  Report Type: Spontaneous
  Country: US (occurrence: US)
  Receive Date: 20240529
  Receipt Date: 20240626
  Transmission Date: 20240716
  Serious: No
  Sender: FDA-Public Use
  Company Number: US-PFIZER INC-202400180086

PATIENT
  Age: 88 Year
  Sex: Female
  Weight: 54.88 kg

DRUGS (8)
  1. EUCRISA [Suspect]
     Active Substance: CRISABOROLE
     Indication: Dermatitis
     Dosage: UNK UNK, 2X/DAY
  2. HYDROCHLOROTHIAZIDE [Concomitant]
     Active Substance: HYDROCHLOROTHIAZIDE
     Indication: Peripheral swelling
     Dosage: UNK, DAILY
  3. HYDROCHLOROTHIAZIDE [Concomitant]
     Active Substance: HYDROCHLOROTHIAZIDE
     Dosage: UNK, 3X/DAY
  4. VITAMIN C [Concomitant]
     Active Substance: ASCORBIC ACID
     Indication: Peripheral swelling
  5. VITAMIN D NOS [Concomitant]
     Active Substance: CHOLECALCIFEROL\ERGOCALCIFEROL
     Indication: Peripheral swelling
  6. FISH OIL [Concomitant]
     Active Substance: FISH OIL
     Indication: Peripheral swelling
  7. MAGNESIUM [Concomitant]
     Active Substance: MAGNESIUM
     Indication: Peripheral swelling
  8. CYANOCOBALAMIN [Concomitant]
     Active Substance: CYANOCOBALAMIN
     Indication: Peripheral swelling

REACTIONS (3)
  - Skin disorder [Not Recovered/Not Resolved]
  - Skin burning sensation [Recovered/Resolved]
  - Tremor [Unknown]
